FAERS Safety Report 16936894 (Version 3)
Quarter: 2020Q1

REPORT INFORMATION
  Report Type: Spontaneous
  Country: GB (occurrence: GB)
  Receive Date: 20191018
  Receipt Date: 20200116
  Transmission Date: 20200409
  Serious: Yes (Other)
  Sender: FDA-Public Use
  Company Number: GB-009507513-1910GBR010371

PATIENT
  Age: 69 Year
  Sex: Female
  Weight: 65 kg

DRUGS (1)
  1. ALENDRONATE SODIUM. [Suspect]
     Active Substance: ALENDRONATE SODIUM
     Indication: OSTEOPOROSIS
     Dosage: 70 MG, QD (IN THE MORNING BEFORE BREAKFAST)
     Route: 048
     Dates: start: 20190909, end: 20190910

REACTIONS (8)
  - Fatigue [Recovered/Resolved]
  - Myalgia [Recovered/Resolved]
  - Malaise [Recovered/Resolved]
  - Headache [Recovered/Resolved]
  - Bone pain [Recovered/Resolved]
  - Musculoskeletal pain [Recovered/Resolved]
  - Musculoskeletal stiffness [Recovered/Resolved]
  - Pain [Recovered/Resolved]

NARRATIVE: CASE EVENT DATE: 20190910
